FAERS Safety Report 7064700-X (Version None)
Quarter: 2010Q4

REPORT INFORMATION
  Report Type: 
  Country: None (occurrence: None)
  Receive Date: 20101027
  Receipt Date: 20101021
  Transmission Date: 20110411
  Serious: Yes (Disabling, Other)
  Sender: FDA-Public Use
  Company Number: FR-ABBOTT-09P-056-0597373-00

PATIENT
  Sex: Female

DRUGS (4)
  1. HUMIRA [Suspect]
     Indication: ANKYLOSING SPONDYLITIS
     Dates: start: 20081001, end: 20081201
  2. HUMIRA [Suspect]
     Dates: start: 20090201, end: 20090310
  3. HUMIRA [Suspect]
     Dates: start: 20090401, end: 20091001
  4. CORTANCYL [Concomitant]
     Indication: UVEITIS
     Route: 048

REACTIONS (1)
  - VOGT-KOYANAGI-HARADA SYNDROME [None]
